FAERS Safety Report 13401489 (Version 1)
Quarter: 2017Q2

REPORT INFORMATION
  Report Type: Spontaneous
  Country: FR (occurrence: FR)
  Receive Date: 20170404
  Receipt Date: 20170404
  Transmission Date: 20170830
  Serious: Yes (Hospitalization, Other)
  Sender: FDA-Public Use
  Company Number: FR-PFIZER INC-2017138586

PATIENT
  Age: 24 Year
  Sex: Female

DRUGS (4)
  1. SEROPLEX [Suspect]
     Active Substance: ESCITALOPRAM OXALATE
     Dosage: 780 MG (78 TABLETS), SINGLE
     Route: 048
     Dates: start: 20170320, end: 20170320
  2. ALPRAZOLAM. [Suspect]
     Active Substance: ALPRAZOLAM
     Dosage: 5 MG (20 TABLETS), SINGLE
     Route: 048
     Dates: start: 20170320, end: 20170320
  3. ZOLOFT [Suspect]
     Active Substance: SERTRALINE HYDROCHLORIDE
     Dosage: 700 MG (14 TABLETS), SINGLE
     Route: 048
     Dates: start: 20170320, end: 20170320
  4. DAFALGAN [Suspect]
     Active Substance: ACETAMINOPHEN
     Dosage: 16 G (32 TABLETS), SINGLE
     Route: 048
     Dates: start: 20170320, end: 20170320

REACTIONS (8)
  - Asthenia [Unknown]
  - Headache [Unknown]
  - Intentional overdose [Unknown]
  - Abdominal pain upper [Unknown]
  - Burning sensation [Unknown]
  - Somnolence [Recovered/Resolved]
  - Abdominal pain [Recovered/Resolved]
  - Toxicity to various agents [Unknown]

NARRATIVE: CASE EVENT DATE: 201703
